FAERS Safety Report 20628536 (Version 2)
Quarter: 2022Q3

REPORT INFORMATION
  Report Type: Report from Study
  Country: US (occurrence: US)
  Receive Date: 20220323
  Receipt Date: 20220902
  Transmission Date: 20221027
  Serious: Yes (Death, Hospitalization, Other)
  Sender: FDA-Public Use
  Company Number: US-ABBVIE-22K-163-4325408-00

PATIENT
  Sex: Male

DRUGS (1)
  1. VENCLEXTA [Suspect]
     Active Substance: VENETOCLAX
     Indication: Chronic myelomonocytic leukaemia
     Dosage: TAKE 1 TABLET BY MOUTH DAILY FOR 2 WEEK(S) ON, THEN 2 WEEKS OFF
     Route: 048

REACTIONS (3)
  - Death [Fatal]
  - Transfusion [Unknown]
  - Off label use [Unknown]
